FAERS Safety Report 20514334 (Version 1)
Quarter: 2022Q1

REPORT INFORMATION
  Report Type: Spontaneous
  Country: US (occurrence: None)
  Receive Date: 20220224
  Receipt Date: 20220224
  Transmission Date: 20220423
  Serious: Yes (Disabling)
  Sender: FDA-Public Use
  Company Number: None

PATIENT

DRUGS (6)
  1. PROLIA [Suspect]
     Active Substance: DENOSUMAB
     Indication: Osteoporosis
     Dosage: OTHER FREQUENCY : ONCE EVERY SIX MON;?
     Dates: start: 20210707
  2. Advair Diskus (fluticasone propionate + salmeterol inhalation powder) [Concomitant]
  3. VITAMIN D3 [Concomitant]
     Active Substance: CHOLECALCIFEROL
  4. VITAMIN D3 [Concomitant]
     Active Substance: CHOLECALCIFEROL
  5. LUTEIN EYE [Concomitant]
  6. CALCIUM [Concomitant]
     Active Substance: CALCIUM

REACTIONS (14)
  - Loss of consciousness [None]
  - Diverticulitis [None]
  - Post herpetic neuralgia [None]
  - Ear pain [None]
  - Tinnitus [None]
  - Sinus operation [None]
  - Blood cholesterol increased [None]
  - High density lipoprotein decreased [None]
  - Low density lipoprotein increased [None]
  - Herpes zoster [None]
  - Arthralgia [None]
  - Myalgia [None]
  - Pain [None]
  - Housebound [None]

NARRATIVE: CASE EVENT DATE: 20210725
